FAERS Safety Report 6153394-3 (Version None)
Quarter: 2009Q2

REPORT INFORMATION
  Report Type: 
  Country: None (occurrence: None)
  Receive Date: 20090409
  Receipt Date: 20090409
  Transmission Date: 20091009
  Serious: No
  Sender: FDA-Public Use
  Company Number: None

PATIENT

DRUGS (1)
  1. APLISOL [Suspect]
     Indication: TUBERCULIN TEST
     Dosage: 5 TU/0.1ML ONCE ID ESTIMATED
     Route: 023
     Dates: start: 20090301, end: 20090407

REACTIONS (2)
  - FALSE POSITIVE TUBERCULOSIS TEST [None]
  - PRODUCT QUALITY ISSUE [None]
